FAERS Safety Report 10802651 (Version 2)
Quarter: 2015Q1

REPORT INFORMATION
  Report Type: Spontaneous
  Country: US (occurrence: US)
  Receive Date: 20150217
  Receipt Date: 20150305
  Transmission Date: 20150721
  Serious: Yes (Hospitalization, Other)
  Sender: FDA-Public Use
  Company Number: US-PFIZER INC-2015056525

PATIENT
  Age: 66 Year
  Sex: Female
  Weight: 137 kg

DRUGS (5)
  1. PRINIVIL [Concomitant]
     Active Substance: LISINOPRIL
     Dosage: 5 MG, 2X/DAY
  2. ACTOS [Concomitant]
     Active Substance: PIOGLITAZONE HYDROCHLORIDE
     Dosage: 45 MG, ONCE DAILY IN THE MORNING
  3. HYTRIN [Concomitant]
     Active Substance: TERAZOSIN HYDROCHLORIDE
     Dosage: 2 MG, 1X/DAY
  4. NEURONTIN [Concomitant]
     Active Substance: GABAPENTIN
     Dosage: 300 MG CAPSULES, 2 CAPSULES (600 MG) TWICE DAILY
  5. DETROL [Suspect]
     Active Substance: TOLTERODINE TARTRATE
     Indication: HYPERTONIC BLADDER
     Dosage: 4 MG CAPSULES, 2 CAPSULES (8 MG) TWICE DAILY

REACTIONS (5)
  - Lymphoedema [Unknown]
  - Nephrolithiasis [Unknown]
  - Haemorrhage [Unknown]
  - Asthenia [Unknown]
  - Urinary tract infection [Recovered/Resolved]

NARRATIVE: CASE EVENT DATE: 201409
